FAERS Safety Report 11995586 (Version 1)
Quarter: 2016Q1

REPORT INFORMATION
  Report Type: Spontaneous
  Country: GB (occurrence: GB)
  Receive Date: 20160203
  Receipt Date: 20160203
  Transmission Date: 20160526
  Serious: Yes (Other)
  Sender: FDA-Public Use
  Company Number: GB-BRISTOL-MYERS SQUIBB COMPANY-BMS-2016-004511

PATIENT
  Age: 27 Year
  Sex: Female
  Weight: 88 kg

DRUGS (1)
  1. METFORMIN HYDROCHLORIDE. [Suspect]
     Active Substance: METFORMIN HYDROCHLORIDE
     Indication: POLYCYSTIC OVARIES
     Dosage: UNK, TID
     Route: 048
     Dates: start: 20150524, end: 20151213

REACTIONS (6)
  - Fatigue [Unknown]
  - Angular cheilitis [Unknown]
  - Onychoclasis [Unknown]
  - Disturbance in attention [Unknown]
  - Alopecia [Unknown]
  - Vitamin B12 absorption test abnormal [Unknown]
